FAERS Safety Report 9500401 (Version 3)
Quarter: 2013Q4

REPORT INFORMATION
  Report Type: Report from Study
  Country: DE (occurrence: DE)
  Receive Date: 20130905
  Receipt Date: 20131004
  Transmission Date: 20140711
  Serious: Yes (Other)
  Sender: FDA-Public Use
  Company Number: DE-TEVA-430245USA

PATIENT
  Sex: Male

DRUGS (2)
  1. BENDAMUSTINE [Suspect]
     Indication: CHRONIC LYMPHOCYTIC LEUKAEMIA
     Dosage: 320 MG PER CYCLE; DAY 1 AND 2 (CYCLE 1)
     Route: 042
     Dates: start: 20130617
  2. BENDAMUSTINE [Suspect]
     Dosage: 190 MG PER CYCLE; DAY 1 AND 2 (CYCLE 3 AND 4)
     Route: 042

REACTIONS (1)
  - Pancytopenia [Recovered/Resolved]
